FAERS Safety Report 8348870-9 (Version None)
Quarter: 2012Q2

REPORT INFORMATION
  Report Type: 
  Country: None (occurrence: None)
  Receive Date: 20120508
  Receipt Date: 20120423
  Transmission Date: 20120825
  Serious: Yes (Life-Threatening, Other)
  Sender: FDA-Public Use
  Company Number: ENT 2012-0070

PATIENT
  Age: 70 Year
  Sex: Female

DRUGS (2)
  1. COMTAN [Suspect]
     Dosage: 5 DOSAGE FORM DAILY; STRENGTH: 200 MG, UNKNOWN STRENGTH: 200 MG, UNKNOWN
  2. SINEMET [Concomitant]

REACTIONS (5)
  - HAEMORRHAGE [None]
  - DRY MOUTH [None]
  - SUICIDE ATTEMPT [None]
  - DYSKINESIA [None]
  - ABNORMAL BEHAVIOUR [None]
